FAERS Safety Report 19474696 (Version 1)
Quarter: 2021Q2

REPORT INFORMATION
  Report Type: Other
  Country: CA (occurrence: CA)
  Receive Date: 20210630
  Receipt Date: 20210630
  Transmission Date: 20210717
  Serious: Yes (Death)
  Sender: FDA-Public Use
  Company Number: CA-CELLTRION INC.-2021CA008623

PATIENT

DRUGS (22)
  1. AMLODIPINE [Concomitant]
     Active Substance: AMLODIPINE BESYLATE
  2. LYRICA [Concomitant]
     Active Substance: PREGABALIN
  3. HYDROXYCHLOROQUINE SULFATE. [Concomitant]
     Active Substance: HYDROXYCHLOROQUINE SULFATE
  4. VITAMIN D [Concomitant]
     Active Substance: VITAMIN D NOS
  5. SALAZOPYRIN [Concomitant]
     Active Substance: SULFASALAZINE
  6. PULMICORT TURBUHALER [Concomitant]
     Active Substance: BUDESONIDE
  7. ACLASTA [Concomitant]
     Active Substance: ZOLEDRONIC ACID
  8. FORTEO [Concomitant]
     Active Substance: TERIPARATIDE
  9. RISEDRONATE [Concomitant]
     Active Substance: RISEDRONATE SODIUM
  10. ACETAMINOPHEN. [Concomitant]
     Active Substance: ACETAMINOPHEN
     Indication: PREMEDICATION
  11. AMITRIPTYLINE [Concomitant]
     Active Substance: AMITRIPTYLINE
  12. SPIRIVA [Concomitant]
     Active Substance: TIOTROPIUM BROMIDE MONOHYDRATE
     Route: 065
  13. VENTOLIN [Concomitant]
     Active Substance: ALBUTEROL SULFATE
  14. RITUXIMAB (UNKNOWN) [Suspect]
     Active Substance: RITUXIMAB
     Indication: RHEUMATOID ARTHRITIS
     Dosage: 500.0 MG
     Route: 042
  15. CALCIUM [Concomitant]
     Active Substance: CALCIUM
  16. METHYLPREDNISOLONE. [Concomitant]
     Active Substance: METHYLPREDNISOLONE
     Indication: PREMEDICATION
  17. PREDNISONE. [Concomitant]
     Active Substance: PREDNISONE
  18. SYNTHROID [Concomitant]
     Active Substance: LEVOTHYROXINE SODIUM
  19. ARAVA [Concomitant]
     Active Substance: LEFLUNOMIDE
  20. CANDESARTAN. [Concomitant]
     Active Substance: CANDESARTAN
  21. DIPHENHYDRAMINE HYDROCHLORIDE. [Concomitant]
     Active Substance: DIPHENHYDRAMINE HYDROCHLORIDE
     Indication: PREMEDICATION
  22. ESOMEPRAZOLE. [Concomitant]
     Active Substance: ESOMEPRAZOLE MAGNESIUM

REACTIONS (2)
  - Underdose [Unknown]
  - COVID-19 [Fatal]
